FAERS Safety Report 15971357 (Version 3)
Quarter: 2019Q2

REPORT INFORMATION
  Report Type: Not Available
  Country: US (occurrence: US)
  Receive Date: 20190215
  Receipt Date: 20190617
  Transmission Date: 20190711
  Serious: Yes (Hospitalization, Other)
  Sender: FDA-Public Use
  Company Number: US-AMAG PHARMACEUTICALS, INC.-AMAG201900246

PATIENT
  Age: 31 Year
  Sex: Female

DRUGS (3)
  1. PRENATAL VITAMINS [Concomitant]
     Active Substance: VITAMINS
     Indication: PRODUCT USED FOR UNKNOWN INDICATION
     Dosage: 1 TABS, UNK
     Route: 065
     Dates: start: 20181030
  2. HUMULIN N [Concomitant]
     Active Substance: INSULIN HUMAN
     Indication: TYPE 2 DIABETES MELLITUS
     Dosage: 4 UNITS, BID
     Route: 065
     Dates: start: 20190111, end: 20190116
  3. MAKENA [Suspect]
     Active Substance: HYDROXYPROGESTERONE CAPROATE
     Indication: PREMATURE DELIVERY
     Dosage: 250 MG/ML, WEEKLY
     Route: 058
     Dates: start: 20190111, end: 20190111

REACTIONS (8)
  - Inappropriate schedule of product administration [Unknown]
  - Premature delivery [Recovered/Resolved]
  - Amniotic cavity infection [Unknown]
  - Oligohydramnios [Unknown]
  - Amniorrhoea [Unknown]
  - Funisitis [Unknown]
  - Chronic villitis of unknown etiology [Unknown]
  - Placental disorder [Unknown]

NARRATIVE: CASE EVENT DATE: 20190111
